FAERS Safety Report 4886351-5 (Version None)
Quarter: 2006Q1

REPORT INFORMATION
  Report Type: 
  Country: None (occurrence: None)
  Receive Date: 20060120
  Receipt Date: 20051005
  Transmission Date: 20060701
  Serious: Yes (Hospitalization, Other)
  Sender: FDA-Public Use
  Company Number: US-MERCK-0510USA04290

PATIENT
  Age: 67 Year
  Sex: Female
  Weight: 102 kg

DRUGS (10)
  1. VIOXX [Suspect]
     Indication: ARTHRITIS
     Route: 048
     Dates: start: 20000101, end: 20041001
  2. VIOXX [Suspect]
     Indication: BACK PAIN
     Route: 048
     Dates: start: 20000101, end: 20041001
  3. HYDRODIURIL [Concomitant]
     Route: 065
  4. FLONASE [Concomitant]
     Route: 065
  5. CLARITIN [Concomitant]
     Route: 065
  6. BIAXIN [Concomitant]
     Route: 065
  7. SYNTHROID [Concomitant]
     Route: 065
  8. ZAROXOLYN [Concomitant]
     Route: 065
  9. ATENOLOL [Concomitant]
     Route: 065
  10. PROMETHAZINE [Concomitant]
     Route: 065

REACTIONS (4)
  - CHEST PAIN [None]
  - ISCHAEMIC STROKE [None]
  - NECK PAIN [None]
  - TRANSIENT ISCHAEMIC ATTACK [None]
